FAERS Safety Report 12726521 (Version 1)
Quarter: 2016Q3

REPORT INFORMATION
  Report Type: Spontaneous
  Country: BR (occurrence: BR)
  Receive Date: 20160908
  Receipt Date: 20160908
  Transmission Date: 20161109
  Serious: Yes (Hospitalization, Other)
  Sender: FDA-Public Use
  Company Number: BR-GILEAD-2016-0231171

PATIENT
  Age: 47 Year
  Sex: Male
  Weight: 72 kg

DRUGS (9)
  1. FERROUS SULFATE. [Concomitant]
     Active Substance: FERROUS SULFATE
     Dosage: 120 MG, QD
     Route: 048
  2. FUROSEMIDE. [Concomitant]
     Active Substance: FUROSEMIDE
     Dosage: 80 MG, QD
     Route: 048
  3. LACTULOSE. [Concomitant]
     Active Substance: LACTULOSE
     Dosage: 2001 UNK, QD
  4. SPIRONOLACTONE. [Concomitant]
     Active Substance: SPIRONOLACTONE
     Dosage: 200 MG, QD
     Route: 048
  5. DAKLINZA [Concomitant]
     Active Substance: DACLATASVIR
     Indication: HEPATITIS C
     Dosage: 60 MG, UNK
     Route: 048
     Dates: start: 20160705, end: 20160719
  6. OMEPRAZOLE. [Concomitant]
     Active Substance: OMEPRAZOLE
     Dosage: 40 MG, QD
     Route: 048
  7. RIBAVIRIN. [Concomitant]
     Active Substance: RIBAVIRIN
     Dosage: 1000 MG, QD
     Route: 048
     Dates: start: 20160705, end: 20160719
  8. PROPRANOLOL [Concomitant]
     Active Substance: PROPRANOLOL\PROPRANOLOL HYDROCHLORIDE
     Dosage: 40 MG, UNK
     Route: 048
  9. SOVALDI [Suspect]
     Active Substance: SOFOSBUVIR
     Indication: HEPATITIS C
     Dosage: 400 MG, UNK
     Route: 048
     Dates: start: 20160705, end: 20160719

REACTIONS (20)
  - Melaena [Unknown]
  - Therapy cessation [Unknown]
  - Somnolence [Unknown]
  - Hepatic encephalopathy [Unknown]
  - Confusional state [Unknown]
  - Muscle haemorrhage [Unknown]
  - Haemodynamic instability [Unknown]
  - Gait disturbance [Unknown]
  - Renal impairment [Unknown]
  - Acute kidney injury [Unknown]
  - Oliguria [Unknown]
  - Septic shock [Unknown]
  - Haemoglobin decreased [Unknown]
  - Dyspnoea [Unknown]
  - Liver transplant [Unknown]
  - Urine output decreased [Unknown]
  - Depressed level of consciousness [Unknown]
  - Asthenia [Unknown]
  - Transfusion [Unknown]
  - Peritonitis bacterial [Unknown]

NARRATIVE: CASE EVENT DATE: 20160707
